FAERS Safety Report 4929279-4 (Version None)
Quarter: 2006Q1

REPORT INFORMATION
  Report Type: 
  Country: None (occurrence: None)
  Receive Date: 20060223
  Receipt Date: 20060203
  Transmission Date: 20060701
  Serious: Yes (Hospitalization)
  Sender: FDA-Public Use
  Company Number: US200601003194

PATIENT
  Age: 70 Year
  Sex: Female
  Weight: 58.5 kg

DRUGS (6)
  1. FORTEO [Suspect]
     Indication: OSTEOPENIA
     Dosage: 20 UG, DAILY (1/D),
     Dates: start: 20050624
  2. FORTEO [Concomitant]
  3. PACERONE [Concomitant]
  4. AMBIEN [Concomitant]
  5. WELLBUTRIN [Concomitant]
  6. DARVOCET-N 100 [Concomitant]

REACTIONS (6)
  - CHRONIC OBSTRUCTIVE PULMONARY DISEASE [None]
  - CONDITION AGGRAVATED [None]
  - HYPERTENSION [None]
  - PLEURAL EFFUSION [None]
  - PNEUMONIA [None]
  - UPPER RESPIRATORY TRACT INFECTION [None]
